FAERS Safety Report 6173752-0 (Version None)
Quarter: 2009Q2

REPORT INFORMATION
  Report Type: 
  Country: None (occurrence: None)
  Receive Date: 20090430
  Receipt Date: 20090423
  Transmission Date: 20091009
  Serious: Yes (Hospitalization, Disabling)
  Sender: FDA-Public Use
  Company Number: PHEH2008US08567

PATIENT
  Sex: Female
  Weight: 87.982 kg

DRUGS (18)
  1. RECLAST [Suspect]
     Indication: OSTEOPOROSIS POSTMENOPAUSAL
     Dosage: 5 MG YEARLY
     Route: 042
     Dates: start: 20080826
  2. CARTIA XT [Concomitant]
     Indication: ATRIAL FIBRILLATION
     Dosage: 18 MG, UNK
  3. CARTIA XT [Concomitant]
     Dosage: 180 MG, QD
     Route: 048
  4. LOVASTATIN [Concomitant]
     Indication: HYPERLIPIDAEMIA
     Dosage: 20 MG, QHS
     Route: 048
  5. METHOTREXATE [Concomitant]
     Indication: RHEUMATOID ARTHRITIS
     Dosage: 2.5 MG, UNK
  6. METHOTREXATE [Concomitant]
     Dosage: 15 MG, UNK
     Route: 048
  7. METHOTREXATE [Concomitant]
     Dosage: 2.5 MG, 8 TABLETS ON WEDNESDAY
  8. LEUCOVORIN CALCIUM [Concomitant]
     Dosage: 5 MG, II
     Route: 048
  9. CALCIUM [Concomitant]
     Dosage: 1500 UNK, UNK
  10. VITAMIN D [Concomitant]
  11. PROTONIX [Concomitant]
     Indication: GASTROOESOPHAGEAL REFLUX DISEASE
     Dosage: 40 MG, QAM
     Route: 048
  12. ATENOLOL [Concomitant]
     Indication: HYPERTENSION
     Dosage: 25 MG, QD
     Route: 048
  13. ATENOLOL [Concomitant]
     Dosage: 50 MG, QD
  14. ERGOCALCIFEROL [Concomitant]
     Indication: VITAMIN D DEFICIENCY
     Dosage: 50000 U, QW
  15. ASPIRIN [Concomitant]
     Indication: CORONARY ARTERY DISEASE
     Dosage: 325 MG, QD
     Route: 048
  16. CALCITRIOL [Concomitant]
  17. TRAVATAN [Concomitant]
  18. DARVOCET-N 100 [Concomitant]

REACTIONS (14)
  - ATRIAL FIBRILLATION [None]
  - BLOOD CREATININE INCREASED [None]
  - BLOOD UREA INCREASED [None]
  - CARDIOVERSION [None]
  - CHEST PAIN [None]
  - DYSPNOEA [None]
  - FALL [None]
  - FATIGUE [None]
  - OEDEMA [None]
  - PALPITATIONS [None]
  - RHINORRHOEA [None]
  - SPINAL COMPRESSION FRACTURE [None]
  - WEIGHT DECREASED [None]
  - WHITE BLOOD CELL COUNT INCREASED [None]
